FAERS Safety Report 8798723 (Version 1)
Quarter: 2012Q4

REPORT INFORMATION
  Report Type: Report from Study
  Country: HU (occurrence: HU)
  Receive Date: 20120920
  Receipt Date: 20120920
  Transmission Date: 20130627
  Serious: Yes (Other)
  Sender: FDA-Public Use
  Company Number: HU-ROCHE-1126161

PATIENT
  Sex: Female

DRUGS (2)
  1. XELODA [Suspect]
     Indication: BREAST CANCER
     Dosage: Dose: 2 X 2
     Route: 048
     Dates: start: 20090707, end: 201012
  2. XELODA [Suspect]
     Indication: METASTASES TO BONE

REACTIONS (1)
  - Arthritis [Unknown]
